FAERS Safety Report 13389734 (Version 6)
Quarter: 2018Q3

REPORT INFORMATION
  Report Type: Report from Study
  Country: ES (occurrence: ES)
  Receive Date: 20170331
  Receipt Date: 20180820
  Transmission Date: 20181010
  Serious: Yes (Hospitalization)
  Sender: FDA-Public Use
  Company Number: ES-ROCHE-1905878

PATIENT
  Age: 64 Year
  Sex: Male
  Weight: 71 kg

DRUGS (38)
  1. ATEZOLIZUMAB. [Suspect]
     Active Substance: ATEZOLIZUMAB
     Indication: NEOPLASM
     Dosage: THE MOST RECENT DOSE OF ATEZOLIZUMAB PRIOR TO THE ONSET OF THE EVENT WAS ON 12/JAN/2017 (START TIME
     Route: 042
     Dates: start: 20150820
  2. HIDROALTESONA [Concomitant]
     Active Substance: HYDROCORTISONE
     Route: 048
     Dates: start: 20150930, end: 20151006
  3. PARACETAMOL [Concomitant]
     Active Substance: ACETAMINOPHEN
     Indication: CATARRH
     Route: 048
     Dates: start: 20151231, end: 20160204
  4. RESINCALCIO [Concomitant]
     Active Substance: CALCIUM POLYSTYRENE SULFONATE
     Route: 048
     Dates: start: 20160609, end: 20160629
  5. INSULIN [Concomitant]
     Active Substance: INSULIN NOS
     Route: 042
     Dates: start: 20161114, end: 20161114
  6. RECTOGESIC (SPAIN) [Concomitant]
     Indication: PROPHYLAXIS
     Dosage: 1 APPLICATION
     Route: 061
  7. CETIRIZINE [Concomitant]
     Active Substance: CETIRIZINE HYDROCHLORIDE
     Indication: PRURITUS
     Route: 048
     Dates: start: 20151112, end: 20151202
  8. PARACETAMOL [Concomitant]
     Active Substance: ACETAMINOPHEN
     Route: 048
  9. HIDROALTESONA [Concomitant]
     Active Substance: HYDROCORTISONE
     Indication: ADRENAL GLAND CANCER
     Dosage: 40MG?0?20MG
     Route: 048
     Dates: start: 20140904, end: 20150802
  10. HIDROALTESONA [Concomitant]
     Active Substance: HYDROCORTISONE
     Dosage: 40MG?0?10MG
     Route: 048
     Dates: start: 20150803, end: 20150809
  11. RESINCALCIO [Concomitant]
     Active Substance: CALCIUM POLYSTYRENE SULFONATE
     Route: 048
     Dates: start: 20160701, end: 20161013
  12. BICARBONATE [Concomitant]
     Indication: CHRONIC KIDNEY DISEASE
     Dosage: MOLAR
     Route: 065
     Dates: start: 20161024, end: 20161104
  13. INSULIN [Concomitant]
     Active Substance: INSULIN NOS
     Indication: CHRONIC KIDNEY DISEASE
     Route: 042
     Dates: start: 20161114, end: 20161114
  14. SIMVASTATINE [Concomitant]
     Active Substance: SIMVASTATIN
     Route: 048
  15. OMEPRAZOL [Concomitant]
     Active Substance: OMEPRAZOLE
     Indication: GASTRITIS PROPHYLAXIS
     Route: 048
  16. HIDROALTESONA [Concomitant]
     Active Substance: HYDROCORTISONE
     Indication: HYPONATRAEMIA
     Route: 048
     Dates: start: 20150810, end: 20150823
  17. POLARAMINE [Concomitant]
     Active Substance: DEXCHLORPHENIRAMINE MALEATE
     Indication: PRURITUS
     Route: 048
     Dates: start: 20151203
  18. RESINCALCIO [Concomitant]
     Active Substance: CALCIUM POLYSTYRENE SULFONATE
     Indication: HYPERKALAEMIA
     Route: 048
     Dates: start: 20160519, end: 20160608
  19. BICARBONATE [Concomitant]
     Indication: BLOOD CREATININE INCREASED
     Route: 042
     Dates: start: 20161114, end: 20161114
  20. METILPREDNISOLONE [Concomitant]
     Active Substance: METHYLPREDNISOLONE
     Route: 042
     Dates: start: 20161102, end: 20161104
  21. AZITROMYCINE [Concomitant]
     Active Substance: AZITHROMYCIN
     Indication: INFECTION PROPHYLAXIS
     Route: 048
     Dates: start: 20151207, end: 20151209
  22. HIDROALTESONA [Concomitant]
     Active Substance: HYDROCORTISONE
     Route: 048
     Dates: start: 20151007, end: 20151013
  23. HIDROALTESONA [Concomitant]
     Active Substance: HYDROCORTISONE
     Dosage: 20?20?10
     Route: 048
     Dates: start: 20170304, end: 20170308
  24. HIDROALTESONA [Concomitant]
     Active Substance: HYDROCORTISONE
     Dosage: 20?20?20
     Route: 048
     Dates: start: 20170309, end: 20170313
  25. EUTIROX [Concomitant]
     Active Substance: LEVOTHYROXINE SODIUM
     Route: 048
     Dates: start: 20160113
  26. BUDESONIDE. [Concomitant]
     Active Substance: BUDESONIDE
     Route: 055
     Dates: start: 20160126
  27. CALCIUM GLUCONATE. [Concomitant]
     Active Substance: CALCIUM GLUCONATE
     Indication: CHRONIC KIDNEY DISEASE
     Dosage: 1 AMPULE
     Route: 042
     Dates: start: 20161114, end: 20161114
  28. HIDROALTESONA [Concomitant]
     Active Substance: HYDROCORTISONE
     Route: 048
     Dates: start: 20150824, end: 20150929
  29. HIDROALTESONA [Concomitant]
     Active Substance: HYDROCORTISONE
     Route: 048
     Dates: start: 20151112, end: 20151207
  30. HIDROALTESONA [Concomitant]
     Active Substance: HYDROCORTISONE
     Route: 048
     Dates: start: 20151208, end: 20151222
  31. HIDROALTESONA [Concomitant]
     Active Substance: HYDROCORTISONE
     Route: 048
     Dates: start: 20170202, end: 20170303
  32. BICARBONATE [Concomitant]
     Route: 048
     Dates: start: 20170202, end: 20170207
  33. HIDROALTESONA [Concomitant]
     Active Substance: HYDROCORTISONE
     Route: 048
     Dates: start: 20151223
  34. RESINCALCIO [Concomitant]
     Active Substance: CALCIUM POLYSTYRENE SULFONATE
     Route: 048
     Dates: start: 20160519, end: 20160630
  35. METILPREDNISOLONE [Concomitant]
     Active Substance: METHYLPREDNISOLONE
     Indication: CHRONIC KIDNEY DISEASE
     Route: 048
     Dates: start: 20161021, end: 20161101
  36. EUTIROX [Concomitant]
     Active Substance: LEVOTHYROXINE SODIUM
     Indication: HYPOTHYROIDISM
     Route: 048
     Dates: start: 20151203, end: 20151222
  37. EUTIROX [Concomitant]
     Active Substance: LEVOTHYROXINE SODIUM
     Route: 048
     Dates: start: 20151223, end: 20160112
  38. MITOTANE [Concomitant]
     Active Substance: MITOTANE
     Indication: ADRENAL GLAND CANCER
     Route: 048
     Dates: start: 20150521, end: 20150720

REACTIONS (3)
  - Chronic kidney disease [Recovered/Resolved]
  - Hyperkalaemia [Recovered/Resolved]
  - Renal impairment [Recovered/Resolved]

NARRATIVE: CASE EVENT DATE: 20160518
